FAERS Safety Report 8896645 (Version 1)
Quarter: 2012Q4

REPORT INFORMATION
  Report Type: Spontaneous
  Country: US (occurrence: None)
  Receive Date: 20121105
  Receipt Date: 20121105
  Transmission Date: 20130627
  Serious: Yes (Other)
  Sender: FDA-Public Use
  Company Number: 2012100125

PATIENT
  Sex: Male

DRUGS (6)
  1. FELBAMATE [Suspect]
  2. FELBAMATE [Suspect]
  3. EPILIM [Concomitant]
  4. LAMOTRIGINE (LAMOTRIGINE) [Concomitant]
  5. PRIMIDONE [Concomitant]
  6. CLOBAZAM [Concomitant]

REACTIONS (3)
  - Inappropriate schedule of drug administration [None]
  - Convulsion [None]
  - Drug ineffective [None]
